FAERS Safety Report 4312792-0 (Version None)
Quarter: 2004Q1

REPORT INFORMATION
  Report Type: 
  Country: None (occurrence: None)
  Receive Date: 20040304
  Receipt Date: 20040225
  Transmission Date: 20041129
  Serious: Yes (Hospitalization)
  Sender: FDA-Public Use
  Company Number: 2004201133SE

PATIENT
  Age: 60 Year
  Sex: Female

DRUGS (1)
  1. DETRUSITOL [Suspect]
     Indication: URETHRITIS
     Dosage: 4 MG QD, ORAL
     Route: 048
     Dates: start: 20030101, end: 20030701

REACTIONS (2)
  - ABDOMINAL PAIN [None]
  - VOMITING [None]
